FAERS Safety Report 8533666-5 (Version None)
Quarter: 2012Q3

REPORT INFORMATION
  Report Type: 
  Country: None (occurrence: None)
  Receive Date: 20120724
  Receipt Date: 20120717
  Transmission Date: 20120928
  Serious: No
  Sender: FDA-Public Use
  Company Number: US-PFIZER INC-2012173607

PATIENT

DRUGS (4)
  1. NORVASC [Suspect]
  2. ZOLOFT [Suspect]
  3. LIPITOR [Suspect]
  4. PROTONIX [Suspect]

REACTIONS (2)
  - GASTRIC PH DECREASED [None]
  - ABDOMINAL PAIN UPPER [None]
